FAERS Safety Report 8865596 (Version 1)
Quarter: 2012Q4

REPORT INFORMATION
  Report Type: 
  Country: US (occurrence: US)
  Receive Date: 20121024
  Receipt Date: 20121024
  Transmission Date: 20130627
  Serious: No
  Sender: FDA-Public Use
  Company Number: US-AMGEN-USASP2012003913

PATIENT
  Age: 45 Year
  Sex: Female
  Weight: 104.31 kg

DRUGS (9)
  1. ENBREL [Suspect]
     Indication: PRODUCT USED FOR UNKNOWN INDICATION
     Dosage: 50 mg, qwk
     Route: 058
  2. METHOTREXATE [Concomitant]
     Dosage: 2.5 mg, UNK
  3. ETODOLAC [Concomitant]
     Dosage: 200 mg, UNK
  4. FOLIC ACID [Concomitant]
     Dosage: 1 mg, UNK
  5. LEVOTHYROXIN [Concomitant]
     Dosage: 112 mcg
  6. MULTIVITAMIN [Concomitant]
     Dosage: UNK
  7. CHONDROITIN [Concomitant]
     Dosage: 250 mg, UNK
  8. LISINOPRIL [Concomitant]
     Dosage: 2.5 mg, UNK
  9. CITALOPRAM [Concomitant]
     Dosage: 40 mg, UNK

REACTIONS (1)
  - Pharyngitis [Unknown]
